FAERS Safety Report 8028348-2 (Version None)
Quarter: 2012Q1

REPORT INFORMATION
  Report Type: 
  Country: None (occurrence: None)
  Receive Date: 20120106
  Receipt Date: 20120104
  Transmission Date: 20120608
  Serious: Yes (Death, Other)
  Sender: FDA-Public Use
  Company Number: PHHY2012PT000794

PATIENT
  Age: 67 Year
  Sex: Female

DRUGS (6)
  1. TACROLIMUS [Suspect]
     Dosage: 4 MG/DAY
  2. TACROLIMUS [Suspect]
     Dosage: 1.5 MG/DAY
  3. PREDNISONE TAB [Suspect]
     Dosage: 7.5 MG/DAY
  4. AMPHOTERICIN B [Concomitant]
     Dosage: 5 MG/KG, UNK
     Route: 042
  5. INSULIN [Concomitant]
  6. SIROLIMUS [Suspect]
     Dosage: 1 MG/DAY

REACTIONS (9)
  - CEREBRAL ISCHAEMIA [None]
  - ASTHENIA [None]
  - ASPERGILLOSIS [None]
  - PYREXIA [None]
  - BRONCHOPULMONARY ASPERGILLOSIS [None]
  - PAIN [None]
  - ERYTHEMA [None]
  - SUBCUTANEOUS NODULE [None]
  - PLEURAL EFFUSION [None]
